FAERS Safety Report 12375540 (Version 2)
Quarter: 2016Q2

REPORT INFORMATION
  Report Type: Spontaneous
  Country: IT (occurrence: IT)
  Receive Date: 20160517
  Receipt Date: 20160525
  Transmission Date: 20160815
  Serious: Yes (Hospitalization)
  Sender: FDA-Public Use
  Company Number: IT-PFIZER INC-2016252826

PATIENT
  Age: 56 Year

DRUGS (9)
  1. OMEPRAZOLE. [Suspect]
     Active Substance: OMEPRAZOLE
     Indication: SUICIDE ATTEMPT
     Dosage: 7 DF, TOTAL
     Route: 048
     Dates: start: 20160421, end: 20160421
  2. SERENASE /00027401/ [Concomitant]
     Active Substance: HALOPERIDOL
     Indication: SCHIZOPHRENIA
     Dosage: 25 GTT, UNK
     Route: 048
  3. AMLODIPINE BESILATE [Suspect]
     Active Substance: AMLODIPINE BESYLATE
     Indication: SUICIDE ATTEMPT
     Dosage: 40 MG, TOTAL
     Route: 048
     Dates: start: 20160421, end: 20160421
  4. HALDOL [Suspect]
     Active Substance: HALOPERIDOL
     Indication: SUICIDE ATTEMPT
     Dosage: 20 GTT, TOTAL
     Route: 048
     Dates: start: 20160421, end: 20160421
  5. ENTUMIN [Suspect]
     Active Substance: CLOTHIAPINE
     Indication: SUICIDE ATTEMPT
     Dosage: 5 ML, TOTAL
     Route: 048
     Dates: start: 20160421, end: 20160421
  6. AKINETON [Suspect]
     Active Substance: BIPERIDEN HYDROCHLORIDE
     Indication: SUICIDE ATTEMPT
     Dosage: 30 DF, TOTAL
     Route: 048
     Dates: start: 20160421, end: 20160421
  7. DELORAZEPAM [Concomitant]
     Active Substance: DELORAZEPAM
     Indication: SCHIZOPHRENIA
     Dosage: 30 GTT, UNK
     Route: 048
  8. SERETIDE [Concomitant]
     Active Substance: FLUTICASONE PROPIONATE\SALMETEROL XINAFOATE
     Dosage: 2 DF, UNK
     Route: 055
  9. OXIBUTININA EG [Suspect]
     Active Substance: OXYBUTYNIN CHLORIDE
     Indication: SUICIDE ATTEMPT
     Dosage: 10 DF, TOTAL
     Route: 048
     Dates: start: 20160421, end: 20160421

REACTIONS (4)
  - Drug abuse [Recovered/Resolved]
  - Suicide attempt [Recovered/Resolved]
  - Agitation [Recovered/Resolved]
  - Aggression [Recovered/Resolved]

NARRATIVE: CASE EVENT DATE: 20160421
